FAERS Safety Report 9465506 (Version 3)
Quarter: 2013Q4

REPORT INFORMATION
  Report Type: Report from Study
  Country: FR (occurrence: FR)
  Receive Date: 20130820
  Receipt Date: 20131125
  Transmission Date: 20140711
  Serious: Yes (Life-Threatening, Hospitalization)
  Sender: FDA-Public Use
  Company Number: FR-BRISTOL-MYERS SQUIBB COMPANY-19082650

PATIENT
  Age: 66 Year
  Sex: Male

DRUGS (4)
  1. IPILIMUMAB [Suspect]
     Indication: MALIGNANT MELANOMA
     Dosage: 780MG: 17JUN13
     Route: 042
  2. ZOLPIDEM [Concomitant]
     Indication: INSOMNIA
     Dates: start: 20130701
  3. TAHOR [Concomitant]
     Indication: DYSLIPIDAEMIA
     Route: 048
  4. IXPRIM [Concomitant]
     Indication: PAIN
     Route: 048
     Dates: start: 20130701

REACTIONS (3)
  - Peritonitis [Not Recovered/Not Resolved]
  - Diarrhoea [Not Recovered/Not Resolved]
  - General physical health deterioration [Not Recovered/Not Resolved]
